FAERS Safety Report 7512381-0 (Version None)
Quarter: 2011Q2

REPORT INFORMATION
  Report Type: 
  Country: None (occurrence: None)
  Receive Date: 20110525
  Receipt Date: 20110525
  Transmission Date: 20111010
  Serious: Yes (Disabling)
  Sender: FDA-Public Use
  Company Number: None

PATIENT
  Age: 59 Year
  Sex: Male
  Weight: 82.5547 kg

DRUGS (1)
  1. ACTIQ [Suspect]
     Indication: PAIN MANAGEMENT
     Dosage: 4 TIMES DAILY AS NEEDED PO
     Route: 048
     Dates: start: 20060101, end: 20110524

REACTIONS (1)
  - DENTAL CARIES [None]
